FAERS Safety Report 8479529-5 (Version None)
Quarter: 2012Q2

REPORT INFORMATION
  Report Type: 
  Country: None (occurrence: None)
  Receive Date: 20120629
  Receipt Date: 20120626
  Transmission Date: 20120825
  Serious: Yes (Hospitalization)
  Sender: FDA-Public Use
  Company Number: US-ACTELION-A-NJ2012-67749

PATIENT

DRUGS (3)
  1. COUMADIN [Concomitant]
  2. ASPIRIN [Concomitant]
  3. VENTAVIS [Suspect]
     Indication: PULMONARY ARTERIAL HYPERTENSION
     Dosage: 5 ?G, 6X DAILY
     Route: 055
     Dates: start: 20110513

REACTIONS (1)
  - CEREBROVASCULAR ACCIDENT [None]
